FAERS Safety Report 21368861 (Version 2)
Quarter: 2022Q4

REPORT INFORMATION
  Report Type: Spontaneous
  Country: US (occurrence: US)
  Receive Date: 20220923
  Receipt Date: 20221102
  Transmission Date: 20230113
  Serious: No
  Sender: FDA-Public Use
  Company Number: US-BRISTOL-MYERS SQUIBB COMPANY-2022-108581

PATIENT
  Age: 61 Year
  Sex: Male

DRUGS (2)
  1. REVLIMID [Suspect]
     Active Substance: LENALIDOMIDE
     Indication: Product used for unknown indication
     Route: 048
  2. LASIX [Suspect]
     Active Substance: FUROSEMIDE
     Indication: Peripheral swelling
     Route: 065

REACTIONS (4)
  - Peripheral swelling [Unknown]
  - Dizziness [Unknown]
  - Pain in extremity [Unknown]
  - Infusion site infection [Unknown]
